FAERS Safety Report 13735511 (Version 1)
Quarter: 2017Q3

REPORT INFORMATION
  Report Type: Spontaneous
  Country: US (occurrence: US)
  Receive Date: 20170709
  Receipt Date: 20170709
  Transmission Date: 20171127
  Serious: Yes (Hospitalization)
  Sender: FDA-Public Use
  Company Number: None

PATIENT
  Age: 35 Year
  Sex: Female
  Weight: 89.1 kg

DRUGS (13)
  1. ZYRTEC [Concomitant]
     Active Substance: CETIRIZINE HYDROCHLORIDE
  2. BATCTRIN [Concomitant]
  3. TYLENOL [Concomitant]
     Active Substance: ACETAMINOPHEN
  4. CIPROFLOXACIN. [Suspect]
     Active Substance: CIPROFLOXACIN
  5. FRIOCET [Concomitant]
  6. SELECT OB [Concomitant]
     Active Substance: .ALPHA.-TOCOPHEROL SUCCINATE, D-\.BETA.-CAROTENE\ASCORBIC ACID\CHOLECALCIFEROL\CYANOCOBALAMIN CO-57\FOLIC ACID\IRON\MAGNESIUM OXIDE\NIACIN\PYRIDOXINE HYDROCHLORIDE\RIBOFLAVIN\THIAMINE MONONITRATE\VITAMIN A ACETATE\ZINC OXIDE
  7. ZINC. [Concomitant]
     Active Substance: ZINC
  8. ALBUTEROL. [Concomitant]
     Active Substance: ALBUTEROL
  9. BENADRYL [Concomitant]
     Active Substance: DIPHENHYDRAMINE HYDROCHLORIDE
  10. NAPROXEN. [Concomitant]
     Active Substance: NAPROXEN
  11. SYMBICORT [Concomitant]
     Active Substance: BUDESONIDE\FORMOTEROL FUMARATE DIHYDRATE
  12. PREDNISONE. [Concomitant]
     Active Substance: PREDNISONE
  13. FLOANASE [Concomitant]

REACTIONS (9)
  - Gastrooesophageal reflux disease [None]
  - Nephrolithiasis [None]
  - Lung disorder [None]
  - Migraine [None]
  - Urticaria [None]
  - Maternal exposure timing unspecified [None]
  - Hypersensitivity [None]
  - Drug hypersensitivity [None]
  - Cyst [None]

NARRATIVE: CASE EVENT DATE: 20170531
